FAERS Safety Report 10716605 (Version 1)
Quarter: 2015Q1

REPORT INFORMATION
  Report Type: Spontaneous
  Country: US (occurrence: None)
  Receive Date: 20150115
  Receipt Date: 20150115
  Transmission Date: 20150721
  Serious: No
  Sender: FDA-Public Use
  Company Number: None

PATIENT
  Age: 33 Year
  Sex: Female
  Weight: 50.8 kg

DRUGS (1)
  1. LEVOFLOXACIN. [Suspect]
     Active Substance: LEVOFLOXACIN
     Indication: SINUSITIS
     Dosage: 1 PILL, ONCE DAILY
     Route: 048
     Dates: start: 20150105, end: 20150107

REACTIONS (8)
  - Nausea [None]
  - Dizziness [None]
  - Muscular weakness [None]
  - Paraesthesia [None]
  - Limb discomfort [None]
  - Arthralgia [None]
  - Muscle spasms [None]
  - Back pain [None]

NARRATIVE: CASE EVENT DATE: 20150105
